FAERS Safety Report 9556848 (Version 3)
Quarter: 2014Q1

REPORT INFORMATION
  Report Type: Spontaneous
  Country: US (occurrence: None)
  Receive Date: 20130924
  Receipt Date: 20140314
  Transmission Date: 20141002
  Serious: Yes (Death, Hospitalization, Other)
  Sender: FDA-Public Use
  Company Number: 2012US000706

PATIENT
  Age: 61 Year
  Sex: Male
  Weight: 63.7 kg

DRUGS (15)
  1. PONATINIB [Suspect]
     Indication: CHROMOSOME ANALYSIS ABNORMAL
     Route: 048
     Dates: start: 20120719, end: 20120729
  2. PONATINIB [Suspect]
     Indication: ACUTE LYMPHOCYTIC LEUKAEMIA
     Route: 048
     Dates: start: 20120719, end: 20120729
  3. ASPIRIN (ACETYLSALICYLIC ACID) [Concomitant]
  4. ZYLOPRIM [Concomitant]
  5. BUMEX [Concomitant]
  6. PEPCID (FAMOTIDINE) [Concomitant]
  7. NOVOLOG [Concomitant]
  8. LANTUS (INSULIN GLARGINE) [Concomitant]
  9. SYNTHROID (LEVOTHYROXINE SODIUM) [Concomitant]
  10. PRINIVIL (LISINOPRIL DIHYDRATE) [Concomitant]
  11. IMODIUM (LOPERAMIDE HYDROCHLORIDE) [Concomitant]
  12. ATIVAN (LORAZEPAM) [Concomitant]
  13. TOPROL-XL (METOPROLOL-XL) [Concomitant]
  14. ZOFRAN (ONDANSETRON HYDROCHLORIDE) [Concomitant]
  15. ALDACTONE (POTASSIUM CANRENOATE) [Concomitant]

REACTIONS (23)
  - Diarrhoea [None]
  - Fatigue [None]
  - Faecal incontinence [None]
  - Defaecation urgency [None]
  - Cardiogenic shock [None]
  - Hypervolaemia [None]
  - Acute coronary syndrome [None]
  - Cardiac failure congestive [None]
  - Pulmonary embolism [None]
  - Splenomegaly [None]
  - Haematocrit decreased [None]
  - Haemoglobin decreased [None]
  - Red blood cell count increased [None]
  - Platelet count decreased [None]
  - Sepsis [None]
  - Febrile neutropenia [None]
  - Bradycardia [None]
  - Pulse absent [None]
  - Renal failure acute [None]
  - Dialysis [None]
  - Cardiac arrest [None]
  - Hyperglycaemia [None]
  - Hyperkalaemia [None]
